FAERS Safety Report 7794025-6 (Version None)
Quarter: 2011Q4

REPORT INFORMATION
  Report Type: 
  Country: None (occurrence: None)
  Receive Date: 20111004
  Receipt Date: 20110922
  Transmission Date: 20120403
  Serious: Yes (Hospitalization, Other)
  Sender: FDA-Public Use
  Company Number: CL-AMGEN-CHLSP2011040038

PATIENT
  Sex: Female

DRUGS (3)
  1. METHOTREXATE [Concomitant]
     Dosage: UNK
     Route: 048
  2. ENBREL [Suspect]
     Indication: JUVENILE ARTHRITIS
     Dosage: UNK
  3. MELOXICAM [Concomitant]
     Dosage: UNK
     Route: 048

REACTIONS (4)
  - HAEMATOCHEZIA [None]
  - ARTHRITIS [None]
  - DYSENTERY [None]
  - PYREXIA [None]
